FAERS Safety Report 8998602 (Version 1)
Quarter: 2013Q1

REPORT INFORMATION
  Report Type: Report from Study
  Country: FR (occurrence: FR)
  Receive Date: 20130103
  Receipt Date: 20130103
  Transmission Date: 20140127
  Serious: Yes (Hospitalization)
  Sender: FDA-Public Use
  Company Number: FR-PFIZER INC-2012331945

PATIENT
  Age: 76 Year
  Sex: Male
  Weight: 77 kg

DRUGS (6)
  1. CRIZOTINIB [Suspect]
     Indication: LUNG NEOPLASM MALIGNANT
     Dosage: 250 MG, 2X/DAY
     Route: 048
     Dates: start: 20120605, end: 20120927
  2. CRIZOTINIB [Suspect]
     Dosage: 250 MG, 2X/DAY
     Route: 048
     Dates: start: 20121127
  3. PLAVIX [Concomitant]
     Indication: CORONARY ARTERY DISEASE
     Dosage: 75 MG, 1X/DAY
     Route: 048
  4. KARDEGIC [Concomitant]
     Indication: CORONARY ARTERY DISEASE
     Dosage: 75 MG, 1X/DAY
     Route: 048
  5. METFORMIN [Concomitant]
     Indication: TYPE 2 DIABETES MELLITUS
     Dosage: 1000 MG, 1X/DAY
     Route: 048
  6. INEXIUM [Concomitant]
     Indication: GASTRITIS
     Dosage: 20 MG, 1X/DAY
     Route: 048

REACTIONS (2)
  - Intestinal obstruction [Recovered/Resolved]
  - Haemoglobin decreased [Unknown]
